FAERS Safety Report 13491749 (Version 5)
Quarter: 2019Q2

REPORT INFORMATION
  Report Type: Report from Study
  Country: GB (occurrence: GB)
  Receive Date: 20170427
  Receipt Date: 20190508
  Transmission Date: 20190711
  Serious: Yes (Other)
  Sender: FDA-Public Use
  Company Number: GB-SA-2017SA039086

PATIENT
  Age: 71 Year
  Sex: Male

DRUGS (3)
  1. OXALIPLATIN. [Concomitant]
     Active Substance: OXALIPLATIN
     Dosage: UNK
  2. METOCLOPRAMIDE. [Concomitant]
     Active Substance: METOCLOPRAMIDE
     Dosage: 10 MG, PRN
     Dates: start: 20170308
  3. PLERIXAFOR [Suspect]
     Active Substance: PLERIXAFOR
     Indication: ADENOCARCINOMA
     Dosage: 120 UG/KG,QH
     Route: 042
     Dates: start: 20170306, end: 20170310

REACTIONS (3)
  - Ventricular arrhythmia [Recovered/Resolved]
  - Embolism [Not Recovered/Not Resolved]
  - Paraesthesia [Recovered/Resolved]

NARRATIVE: CASE EVENT DATE: 20170307
